FAERS Safety Report 23057130 (Version 1)
Quarter: 2023Q4

REPORT INFORMATION
  Report Type: Spontaneous
  Country: US (occurrence: US)
  Receive Date: 20231012
  Receipt Date: 20231012
  Transmission Date: 20240110
  Serious: No
  Sender: FDA-Public Use
  Company Number: US-VIIV HEALTHCARE LIMITED-US2023AMR138143

PATIENT
  Sex: Male

DRUGS (1)
  1. JULUCA [Suspect]
     Active Substance: DOLUTEGRAVIR SODIUM\RILPIVIRINE HYDROCHLORIDE
     Indication: HIV infection CDC Group III
     Dosage: 1 DF, QD 50-25 MG
     Route: 048
     Dates: end: 20230919

REACTIONS (1)
  - Product dose omission issue [Unknown]
